FAERS Safety Report 6272422-8 (Version None)
Quarter: 2009Q3

REPORT INFORMATION
  Report Type: 
  Country: None (occurrence: None)
  Receive Date: 20090717
  Receipt Date: 20090706
  Transmission Date: 20100115
  Serious: Yes (Congenital Anomaly)
  Sender: FDA-Public Use
  Company Number: SA-MERCK-0907USA01592B1

PATIENT
  Sex: Female
  Weight: 4 kg

DRUGS (1)
  1. PROPECIA [Suspect]
     Indication: ANDROGENETIC ALOPECIA
     Route: 064

REACTIONS (2)
  - CAFE AU LAIT SPOTS [None]
  - PHALANGEAL AGENESIS [None]
